FAERS Safety Report 11639787 (Version 2)
Quarter: 2015Q4

REPORT INFORMATION
  Report Type: Spontaneous
  Country: US (occurrence: US)
  Receive Date: 20151019
  Receipt Date: 20151117
  Transmission Date: 20160304
  Serious: Yes (Hospitalization)
  Sender: FDA-Public Use
  Company Number: US-VERTEX PHARMACEUTICALS-2015-004474

PATIENT
  Age: 31 Year
  Sex: Female

DRUGS (1)
  1. ORKAMBI [Suspect]
     Active Substance: IVACAFTOR\LUMACAFTOR
     Indication: CYSTIC FIBROSIS
     Dosage: UNK
     Route: 048
     Dates: start: 201509

REACTIONS (4)
  - Pulmonary congestion [Unknown]
  - Cough [Unknown]
  - Dyspnoea [Recovering/Resolving]
  - Infective pulmonary exacerbation of cystic fibrosis [Recovering/Resolving]
